FAERS Safety Report 7156070-3 (Version None)
Quarter: 2010Q4

REPORT INFORMATION
  Report Type: 
  Country: None (occurrence: None)
  Receive Date: 20101123
  Receipt Date: 20100817
  Transmission Date: 20110411
  Serious: Yes (Hospitalization)
  Sender: FDA-Public Use
  Company Number: 8037731

PATIENT
  Sex: Female
  Weight: 62.7 kg

DRUGS (12)
  1. CIMZIA [Suspect]
     Indication: CROHN'S DISEASE
     Dosage: (400 MG 1X/2 WEEKS SUBCUTANEOUS), (400 MG, DOSE FREQ.: ONCE MONTHLY SUBCUTANEOUS)
     Route: 058
     Dates: start: 20080605, end: 20080703
  2. CIMZIA [Suspect]
     Indication: CROHN'S DISEASE
     Dosage: (400 MG 1X/2 WEEKS SUBCUTANEOUS), (400 MG, DOSE FREQ.: ONCE MONTHLY SUBCUTANEOUS)
     Route: 058
     Dates: start: 20080519
  3. IMURAN [Concomitant]
  4. FLAGYL [Concomitant]
  5. MORPHINE [Concomitant]
  6. SYNTHROID [Concomitant]
  7. IRON [Concomitant]
  8. POTASSIUM /00031402/ [Concomitant]
  9. PHENERGAN [Concomitant]
  10. ZOFRAN [Concomitant]
  11. XANAX [Concomitant]
  12. PREDNISONE [Concomitant]

REACTIONS (4)
  - ABDOMINAL PAIN UPPER [None]
  - CROHN'S DISEASE [None]
  - LIVER SCAN ABNORMAL [None]
  - OEDEMA PERIPHERAL [None]
